FAERS Safety Report 6197947-5 (Version None)
Quarter: 2009Q2

REPORT INFORMATION
  Report Type: 
  Country: None (occurrence: None)
  Receive Date: 20090521
  Receipt Date: 20090514
  Transmission Date: 20091009
  Serious: Yes (Hospitalization)
  Sender: FDA-Public Use
  Company Number: B0566283A

PATIENT
  Sex: Male

DRUGS (7)
  1. PAXIL [Suspect]
     Indication: DEPRESSION
     Dosage: 20MG PER DAY
     Route: 048
     Dates: start: 20080708, end: 20081107
  2. DEPAS [Concomitant]
     Dosage: 1.5MG PER DAY
     Route: 048
     Dates: start: 20080708
  3. ROHYPNOL [Concomitant]
     Dosage: 2MG PER DAY
     Route: 048
     Dates: start: 20080708
  4. AMOBAN [Concomitant]
     Dosage: 10MG PER DAY
     Route: 048
     Dates: start: 20080708
  5. NOCBIN [Concomitant]
     Dosage: .3G PER DAY
     Route: 048
     Dates: start: 20080708, end: 20081027
  6. MUCOSTA [Concomitant]
     Dosage: 300MG PER DAY
     Route: 048
     Dates: start: 20080708, end: 20081027
  7. DEPAKENE [Concomitant]
     Dosage: 400MG PER DAY
     Route: 048
     Dates: start: 20081108

REACTIONS (2)
  - AGGRESSION [None]
  - AGITATION [None]
